FAERS Safety Report 13390632 (Version 1)
Quarter: 2017Q1

REPORT INFORMATION
  Report Type: Spontaneous
  Country: US (occurrence: US)
  Receive Date: 20170331
  Receipt Date: 20170331
  Transmission Date: 20170429
  Serious: No
  Sender: FDA-Public Use
  Company Number: US-BAYER-2017-061409

PATIENT
  Age: 14 Year
  Sex: Female
  Weight: 49.98 kg

DRUGS (3)
  1. IBUPROFEN. [Concomitant]
     Active Substance: IBUPROFEN
  2. CLARITIN [Suspect]
     Active Substance: LORATADINE
     Indication: NASOPHARYNGITIS
  3. CLARITIN [Suspect]
     Active Substance: LORATADINE
     Indication: HYPERSENSITIVITY
     Dosage: 2 TEASPOONS, QD
     Route: 048
     Dates: start: 20170327, end: 20170329

REACTIONS (1)
  - Rash [Unknown]

NARRATIVE: CASE EVENT DATE: 20170329
